FAERS Safety Report 15584612 (Version 1)
Quarter: 2018Q4

REPORT INFORMATION
  Report Type: Spontaneous
  Country: US (occurrence: US)
  Receive Date: 20181031
  Receipt Date: 20181031
  Transmission Date: 20190205
  Serious: Yes (Hospitalization)
  Sender: FDA-Public Use
  Company Number: None

PATIENT
  Age: 73 Year
  Sex: Male

DRUGS (1)
  1. TROSPIUM [Suspect]
     Active Substance: TROSPIUM
     Indication: URINARY INCONTINENCE
     Dates: start: 20180818, end: 20180818

REACTIONS (1)
  - Urinary retention [None]

NARRATIVE: CASE EVENT DATE: 20180819
